FAERS Safety Report 18689230 (Version 1)
Quarter: 2020Q4

REPORT INFORMATION
  Report Type: Spontaneous
  Country: IT (occurrence: IT)
  Receive Date: 20201231
  Receipt Date: 20201231
  Transmission Date: 20210114
  Serious: Yes (Hospitalization, Other)
  Sender: FDA-Public Use
  Company Number: IT-009507513-2012ITA012298

PATIENT
  Age: 61 Year
  Sex: Male

DRUGS (2)
  1. KEYTRUDA [Suspect]
     Active Substance: PEMBROLIZUMAB
     Indication: LUNG ADENOCARCINOMA STAGE IV
     Dosage: 2 MILLIGRAM/KILOGRAM, CYCLICAL (2 CYCLES)
     Dates: start: 201902, end: 2019
  2. KEYTRUDA [Suspect]
     Active Substance: PEMBROLIZUMAB
     Indication: LUNG ADENOCARCINOMA
     Dosage: 2 MILLIGRAM/KILOGRAM, CYCLICAL (16 CYCLES), TOTAL 18 ADMINISTRATIONS
     Dates: start: 2019

REACTIONS (7)
  - Fistula of small intestine [Recovered/Resolved]
  - Rash [Recovered/Resolved]
  - Intestinal obstruction [Recovered/Resolved]
  - Pruritus [Recovered/Resolved]
  - Gallbladder fistula [Recovered/Resolved]
  - Acute abdomen [Recovered/Resolved]
  - Gallstone ileus [Recovered/Resolved]

NARRATIVE: CASE EVENT DATE: 2019
